FAERS Safety Report 23116125 (Version 1)
Quarter: 2023Q4

REPORT INFORMATION
  Report Type: Report from Study
  Country: CN (occurrence: CN)
  Receive Date: 20231027
  Receipt Date: 20231027
  Transmission Date: 20240110
  Serious: Yes (Hospitalization)
  Sender: FDA-Public Use
  Company Number: CN-JNJFOC-20231047341

PATIENT

DRUGS (3)
  1. RISPERIDONE [Suspect]
     Active Substance: RISPERIDONE
     Indication: Schizophrenia
     Route: 065
  2. CHLORPROMAZINE [Suspect]
     Active Substance: CHLORPROMAZINE
     Indication: Schizophrenia
     Route: 065
  3. OLANZAPINE [Suspect]
     Active Substance: OLANZAPINE
     Indication: Schizophrenia
     Route: 065

REACTIONS (13)
  - Hepatic function abnormal [Unknown]
  - Extrapyramidal disorder [Unknown]
  - Hypotension [Unknown]
  - Musculoskeletal stiffness [Unknown]
  - Platelet count decreased [Unknown]
  - Somnolence [Unknown]
  - Face oedema [Unknown]
  - Urinary incontinence [Unknown]
  - Tachycardia [Unknown]
  - Urinary retention [Unknown]
  - Electrocardiogram QT shortened [Unknown]
  - Poisoning [Unknown]
  - Overdose [Unknown]
